FAERS Safety Report 25480385 (Version 2)
Quarter: 2025Q2

REPORT INFORMATION
  Report Type: Spontaneous
  Country: JP (occurrence: JP)
  Receive Date: 20250625
  Receipt Date: 20250630
  Transmission Date: 20250716
  Serious: Yes (Hospitalization)
  Sender: PFIZER
  Company Number: JP-PFIZER INC-PV202500066256

PATIENT

DRUGS (1)
  1. PAXLOVID [Suspect]
     Active Substance: NIRMATRELVIR\RITONAVIR
     Indication: COVID-19 treatment
     Dosage: [NIRMATRELVIR 300 MG]/[RITONAVIR 100 MG, 2X/DAY
     Route: 048
     Dates: start: 20250329, end: 20250402

REACTIONS (2)
  - Therapeutic product effect incomplete [Unknown]
  - Treatment delayed [Recovering/Resolving]

NARRATIVE: CASE EVENT DATE: 20250401
